FAERS Safety Report 9127445 (Version 1)
Quarter: 2013Q1

REPORT INFORMATION
  Report Type: Spontaneous
  Country: US (occurrence: US)
  Receive Date: 20130228
  Receipt Date: 20130228
  Transmission Date: 20140127
  Serious: Yes (Death, Hospitalization)
  Sender: FDA-Public Use
  Company Number: US-SANOFI-AVENTIS-2013SA016553

PATIENT
  Sex: Male

DRUGS (1)
  1. ZALTRAP [Suspect]
     Indication: COLORECTAL CANCER METASTATIC
     Route: 041

REACTIONS (4)
  - Death [Fatal]
  - Diarrhoea [Unknown]
  - Electrolyte imbalance [Unknown]
  - Thrombocytopenia [Not Recovered/Not Resolved]
